FAERS Safety Report 12743795 (Version 1)
Quarter: 2016Q3

REPORT INFORMATION
  Report Type: Spontaneous
  Country: GB (occurrence: GB)
  Receive Date: 20160914
  Receipt Date: 20160914
  Transmission Date: 20161109
  Serious: Yes (Hospitalization)
  Sender: FDA-Public Use
  Company Number: PHHY2016GB123153

PATIENT
  Sex: Male

DRUGS (1)
  1. PHENOXYMETHYLPENICILLIN POTASSIUM [Suspect]
     Active Substance: PENICILLIN V POTASSIUM
     Indication: INFECTIOUS MONONUCLEOSIS
     Route: 048

REACTIONS (1)
  - Drug reaction with eosinophilia and systemic symptoms [Recovering/Resolving]

NARRATIVE: CASE EVENT DATE: 20160822
